FAERS Safety Report 20981202 (Version 1)
Quarter: 2022Q2

REPORT INFORMATION
  Report Type: Spontaneous
  Country: CN (occurrence: CN)
  Receive Date: 20220620
  Receipt Date: 20220620
  Transmission Date: 20220720
  Serious: Yes (Other)
  Sender: FDA-Public Use
  Company Number: CN-GLAXOSMITHKLINE-CN2022APC094186

PATIENT

DRUGS (1)
  1. FLUTICASONE PROPIONATE [Suspect]
     Active Substance: FLUTICASONE PROPIONATE
     Indication: Rhinitis allergic
     Dosage: 200 UG, QD
     Route: 045
     Dates: start: 20220515, end: 20220601

REACTIONS (5)
  - Erythema multiforme [Unknown]
  - Erythema [Unknown]
  - Papule [Unknown]
  - Pruritus [Unknown]
  - Lip ulceration [Unknown]

NARRATIVE: CASE EVENT DATE: 20220602
